FAERS Safety Report 15919652 (Version 1)
Quarter: 2019Q1

REPORT INFORMATION
  Report Type: Spontaneous
  Country: US (occurrence: US)
  Receive Date: 20190205
  Receipt Date: 20190205
  Transmission Date: 20190417
  Serious: No
  Sender: FDA-Public Use
  Company Number: US-ROCHE-2108487

PATIENT
  Sex: Male

DRUGS (17)
  1. KENALOG [Concomitant]
     Active Substance: TRIAMCINOLONE ACETONIDE
     Dosage: 1 APPLICATION TOPICALLY, AS NEEDED
     Route: 061
  2. XOLAIR [Suspect]
     Active Substance: OMALIZUMAB
     Indication: ASTHMA
     Route: 058
     Dates: start: 20170831
  3. BENADRYL [Concomitant]
     Active Substance: DIPHENHYDRAMINE HYDROCHLORIDE
     Indication: HYPERSENSITIVITY
     Dosage: 12.5 MG/5 ML
     Route: 048
  4. XOLAIR [Suspect]
     Active Substance: OMALIZUMAB
     Route: 058
     Dates: start: 2018
  5. SYMBICORT [Concomitant]
     Active Substance: BUDESONIDE\FORMOTEROL FUMARATE DIHYDRATE
     Dosage: 160/4.5 INHALE 2 PUFFS INTO LNGS WITH CHAMBER BID
     Route: 065
  6. SINGULAIR [Concomitant]
     Active Substance: MONTELUKAST SODIUM
     Route: 048
  7. PRELONE [Concomitant]
     Active Substance: PREDNISOLONE
     Dosage: 27-JUL-2017, 16-NOV-2017 AND -JAN-2018
     Route: 065
  8. AZELASTINE HYDROCHLORIDE/FLUTICASONE PROPIONATE [Concomitant]
     Dosage: 1 SPRAY IN EACH NOSTRIL AS NEEDED
     Route: 045
  9. ZYRTEC [Concomitant]
     Active Substance: CETIRIZINE HYDROCHLORIDE
     Dosage: TAKE 5 MLS BY MOUTH DAILY?1 MG/ML
     Route: 065
  10. ATARAX [Concomitant]
     Active Substance: HYDROXYZINE HYDROCHLORIDE
     Dosage: 10 MG/5 ML SYRUP
     Route: 048
  11. EPIPEN JR [Concomitant]
     Active Substance: EPINEPHRINE
     Dosage: 0.15 MG/0.3 ML AUTO INJECTOR?INTO THE MUSCLE AS NEEDED.
     Route: 065
  12. LIDEX [Concomitant]
     Active Substance: FLUOCINONIDE
     Dosage: APPLY 1 APPLICATION TOPICALLY
     Route: 065
  13. KENALOG [Concomitant]
     Active Substance: TRIAMCINOLONE ACETONIDE
     Dosage: 1 APPLICATION TOPICALLY, AS NEEDED
     Route: 061
  14. PRELONE [Concomitant]
     Active Substance: PREDNISOLONE
     Dosage: 22.5MG=7.5ML FOR 2 DAYS
     Route: 048
     Dates: start: 20170418
  15. FLONASE [Concomitant]
     Active Substance: FLUTICASONE PROPIONATE
     Dosage: 50MCG/ACTUATION NASAL SPRAY1SPRAY IN EACH NOSTRIL
     Route: 065
  16. PRELONE [Concomitant]
     Active Substance: PREDNISOLONE
     Dosage: 22.5MG=7.5ML FOR 2 DAYS
     Route: 048
     Dates: start: 20170628
  17. BENADRYL [Concomitant]
     Active Substance: DIPHENHYDRAMINE HYDROCHLORIDE
     Indication: PRURITUS

REACTIONS (10)
  - Nasal oedema [Unknown]
  - Nasal mucosal discolouration [Unknown]
  - Heart rate increased [Unknown]
  - Wheezing [Unknown]
  - Poor quality sleep [Unknown]
  - Rash [Unknown]
  - Rhinorrhoea [Unknown]
  - Cough [Unknown]
  - Oropharyngeal cobble stone mucosa [Unknown]
  - Muscle spasms [Unknown]

NARRATIVE: CASE EVENT DATE: 2018
